FAERS Safety Report 5384061-1 (Version None)
Quarter: 2007Q3

REPORT INFORMATION
  Report Type: 
  Country: None (occurrence: None)
  Receive Date: 20070711
  Receipt Date: 20070702
  Transmission Date: 20080115
  Serious: Yes (Hospitalization)
  Sender: FDA-Public Use
  Company Number: US-ASTRAZENECA-2006UW21362

PATIENT
  Age: 580 Month
  Sex: Female
  Weight: 67.7 kg

DRUGS (2)
  1. SEROQUEL [Suspect]
     Indication: DEPRESSION
     Route: 048
     Dates: start: 20000101, end: 20030101
  2. PAXIL [Concomitant]

REACTIONS (3)
  - HYPERGLYCAEMIA [None]
  - INJURY [None]
  - OVERDOSE [None]
